FAERS Safety Report 5381555-X (Version None)
Quarter: 2007Q3

REPORT INFORMATION
  Report Type: 
  Country: None (occurrence: None)
  Receive Date: 20070709
  Receipt Date: 20070703
  Transmission Date: 20080115
  Serious: Yes (Hospitalization)
  Sender: FDA-Public Use
  Company Number: JP-AVENTIS-200711606JP

PATIENT
  Age: 55 Year
  Sex: Male

DRUGS (2)
  1. LANTUS [Suspect]
     Indication: DIABETES MELLITUS
     Route: 058
     Dates: start: 20040201
  2. ISZILIN NPH [Concomitant]
     Indication: DIABETES MELLITUS
     Dates: end: 20040201

REACTIONS (1)
  - HEPATIC FUNCTION ABNORMAL [None]
